FAERS Safety Report 15934690 (Version 2)
Quarter: 2019Q1

REPORT INFORMATION
  Report Type: Other
  Country: IT (occurrence: IT)
  Receive Date: 20190207
  Receipt Date: 20190211
  Transmission Date: 20190417
  Serious: Yes (Hospitalization)
  Sender: FDA-Public Use
  Company Number: IT-BIOCODEX SA-201801654

PATIENT
  Age: 5 Year
  Sex: Female

DRUGS (15)
  1. FRISIUM [Suspect]
     Active Substance: CLOBAZAM
     Dosage: 3.0 MG, QD
     Route: 048
     Dates: start: 20170803, end: 20170809
  2. DIACOMIT [Suspect]
     Active Substance: STIRIPENTOL
     Dosage: 250 MG, QD
     Route: 048
     Dates: start: 20150908, end: 20151012
  3. FRISIUM [Suspect]
     Active Substance: CLOBAZAM
     Dosage: 4 MG, QD
     Route: 048
     Dates: start: 20180112, end: 20180126
  4. FRISIUM [Suspect]
     Active Substance: CLOBAZAM
     Dosage: 3 MG, QD
     Route: 048
     Dates: start: 20180223
  5. DIACOMIT [Suspect]
     Active Substance: STIRIPENTOL
     Dosage: 200 MG, QD
     Route: 048
     Dates: start: 20150825, end: 20150907
  6. DIACOMIT [Suspect]
     Active Substance: STIRIPENTOL
     Dosage: 350 MG, QD
     Route: 048
     Dates: start: 20151110, end: 20151215
  7. DIACOMIT [Suspect]
     Active Substance: STIRIPENTOL
     Dosage: 200 MG, QD
     Route: 048
     Dates: start: 20151216, end: 20160308
  8. FRISIUM [Suspect]
     Active Substance: CLOBAZAM
     Dosage: 5 MG, QD
     Route: 048
     Dates: start: 20170810, end: 20180111
  9. DIACOMIT [Suspect]
     Active Substance: STIRIPENTOL
     Indication: EPILEPSY
     Dosage: 500 MG, QD
     Route: 048
     Dates: start: 20180101, end: 20180505
  10. FRISIUM [Suspect]
     Active Substance: CLOBAZAM
     Indication: EPILEPSY
     Dosage: 10 MG, QD
     Route: 048
     Dates: start: 20180101, end: 20180509
  11. FRISIUM [Suspect]
     Active Substance: CLOBAZAM
     Dosage: 1.5 MG, QD
     Route: 048
     Dates: start: 20170727, end: 20170802
  12. FRISIUM [Suspect]
     Active Substance: CLOBAZAM
     Dosage: 3.5 MG, QD
     Route: 048
     Dates: start: 20180127, end: 20180222
  13. DIACOMIT [Suspect]
     Active Substance: STIRIPENTOL
     Dosage: 150 MG, QD
     Route: 048
     Dates: start: 20150804, end: 20150824
  14. DIACOMIT [Suspect]
     Active Substance: STIRIPENTOL
     Dosage: 300 MG, QD
     Route: 048
     Dates: start: 20151013, end: 20151109
  15. DIACOMIT [Suspect]
     Active Substance: STIRIPENTOL
     Dosage: 70 MG, QD
     Route: 048
     Dates: start: 20160309, end: 20160419

REACTIONS (3)
  - Epilepsy [Unknown]
  - Seizure [Unknown]
  - Product use in unapproved indication [Recovered/Resolved]

NARRATIVE: CASE EVENT DATE: 20180101
